FAERS Safety Report 9277986 (Version 1)
Quarter: 2013Q2

REPORT INFORMATION
  Report Type: Spontaneous
  Country: US (occurrence: US)
  Receive Date: 20130508
  Receipt Date: 20130508
  Transmission Date: 20140414
  Serious: No
  Sender: FDA-Public Use
  Company Number: US-BIOGENIDEC-2012BI057563

PATIENT
  Age: 42 Year
  Sex: Female

DRUGS (1)
  1. AVONEX [Suspect]
     Indication: MULTIPLE SCLEROSIS
     Route: 030
     Dates: start: 20080312

REACTIONS (11)
  - Road traffic accident [Recovered/Resolved]
  - Fall [Recovered/Resolved]
  - Cognitive disorder [Not Recovered/Not Resolved]
  - Gait disturbance [Not Recovered/Not Resolved]
  - Crying [Recovered/Resolved with Sequelae]
  - Contusion [Not Recovered/Not Resolved]
  - Laceration [Recovered/Resolved]
  - Sensitivity to weather change [Not Recovered/Not Resolved]
  - Depressed mood [Recovered/Resolved with Sequelae]
  - Pain [Not Recovered/Not Resolved]
  - Headache [Recovered/Resolved]
